FAERS Safety Report 6076552-5 (Version None)
Quarter: 2009Q1

REPORT INFORMATION
  Report Type: 
  Country: None (occurrence: None)
  Receive Date: 20090209
  Receipt Date: 20090128
  Transmission Date: 20090719
  Serious: Yes (Other)
  Sender: FDA-Public Use
  Company Number: 2008JP005312

PATIENT
  Age: 77 Year
  Sex: Female

DRUGS (9)
  1. PROGRAF [Suspect]
     Indication: RHEUMATOID ARTHRITIS
     Dosage: 2.5 MG, UID/QD, ORAL
     Route: 048
     Dates: start: 20070723, end: 20081022
  2. AZULFIDINE [Suspect]
     Indication: RHEUMATOID ARTHRITIS
     Dosage: 0.5 G, BID, ORAL
     Route: 048
     Dates: start: 20070328, end: 20081022
  3. CELECOX (CELECOXIB) TABLET, UNKNOWN [Concomitant]
  4. CYTOTEC [Concomitant]
  5. PREDNISOLONE [Concomitant]
  6. BONALON (ALENDRONATE SODIUM) TABLET [Concomitant]
  7. ONEALFA (ALFACALCIDOL) TABLET [Concomitant]
  8. VOLTAREN OINTMENT [Concomitant]
  9. SUVENYL (HYALURONATE SODIUM) INJECTION [Concomitant]

REACTIONS (4)
  - BONE MARROW FAILURE [None]
  - LABORATORY TEST INTERFERENCE [None]
  - NASOPHARYNGITIS [None]
  - PHYTOTHERAPY [None]
